FAERS Safety Report 5274454-5 (Version None)
Quarter: 2007Q1

REPORT INFORMATION
  Report Type: 
  Country: None (occurrence: None)
  Receive Date: 20070323
  Receipt Date: 20070312
  Transmission Date: 20070707
  Serious: Yes (Other)
  Sender: FDA-Public Use
  Company Number: US-PFIZER INC-2007019327

PATIENT
  Sex: Female

DRUGS (10)
  1. BEXTRA [Suspect]
     Indication: MUSCULOSKELETAL PAIN
  2. LIPITOR [Concomitant]
     Dosage: DAILY DOSE:40MG
     Route: 048
  3. ACETYLSALICYLIC ACID SRT [Concomitant]
     Dosage: DAILY DOSE:325MG
     Route: 048
  4. NEURONTIN [Concomitant]
     Route: 048
  5. SPIRONOLACTONE [Concomitant]
     Route: 048
  6. ATENOLOL [Concomitant]
     Route: 048
  7. TRAZODONE HCL [Concomitant]
     Route: 048
  8. LORAZEPAM [Concomitant]
     Route: 048
  9. ALBUTEROL [Concomitant]
  10. SEREVENT [Concomitant]

REACTIONS (1)
  - STEVENS-JOHNSON SYNDROME [None]
